FAERS Safety Report 10373662 (Version 1)
Quarter: 2014Q1

REPORT INFORMATION
  Report Type: Spontaneous
  Country: US (occurrence: None)
  Receive Date: 20140306
  Receipt Date: 20140306
  Transmission Date: 20141002
  Serious: Yes (Hospitalization, Other)
  Sender: FDA-Public Use
  Company Number: 163-21880-13051426

PATIENT
  Age: 78 Year
  Sex: Male
  Weight: 74.8 kg

DRUGS (11)
  1. REVLIMID (LENALIDOMIDE) (25 MILLIGRAM, CAPSULES) [Suspect]
     Indication: PLASMA CELL MYELOMA
     Dosage: 21 IN 21 D
     Route: 048
     Dates: start: 20130314
  2. FENTANYL [Concomitant]
  3. BAYER ASPIRIN (ACETYLSALICYLIC ACID) [Concomitant]
  4. METHADONE HCL (METHADONE HYDROCHLORIDE) [Concomitant]
  5. GABAPENTIN [Concomitant]
  6. CITALOPRAM HBR (CITALOPRAM HYDROBROMIDE) [Concomitant]
  7. LISINOPRIL [Concomitant]
  8. OMEPRAZOLE HCL (OMEPRAZOLE HYDROCHLORIDE) [Concomitant]
  9. OXYCODONE HCL (OXYCODONE HYDROCHLORIDE) [Concomitant]
  10. FOLIC ACID [Concomitant]
  11. IRON [Concomitant]

REACTIONS (3)
  - Anaemia [None]
  - Hypersensitivity [None]
  - Urinary tract infection [None]
